FAERS Safety Report 23552352 (Version 1)
Quarter: 2024Q1

REPORT INFORMATION
  Report Type: Spontaneous
  Country: PT (occurrence: PT)
  Receive Date: 20240222
  Receipt Date: 20240222
  Transmission Date: 20240410
  Serious: Yes (Other)
  Sender: FDA-Public Use
  Company Number: PT-Nova Laboratories Limited-2153502

PATIENT
  Age: 11 Year
  Sex: Male

DRUGS (2)
  1. PURIXAN [Suspect]
     Active Substance: MERCAPTOPURINE
     Route: 048
     Dates: start: 20220609
  2. LEDERTREXATO (METHOTREXATE) [Concomitant]

REACTIONS (4)
  - Throat irritation [Recovering/Resolving]
  - Off label use [Unknown]
  - Product colour issue [Unknown]
  - Dysphonia [Recovering/Resolving]

NARRATIVE: CASE EVENT DATE: 20220609
